FAERS Safety Report 16530512 (Version 1)
Quarter: 2019Q3

REPORT INFORMATION
  Report Type: Spontaneous
  Country: DE (occurrence: DE)
  Receive Date: 20190704
  Receipt Date: 20190704
  Transmission Date: 20191004
  Serious: Yes (Hospitalization, Other)
  Sender: FDA-Public Use
  Company Number: DE-AUROBINDO-AUR-APL-2019-038886

PATIENT

DRUGS (4)
  1. LAMOTRIGINE. [Suspect]
     Active Substance: LAMOTRIGINE
     Indication: EPILEPSY
     Dosage: 400 MILLIGRAM, ONCE A DAY(400 MG (200-0-200) MG)
     Route: 048
     Dates: start: 2008
  2. SUFENTANIL [Concomitant]
     Active Substance: SUFENTANIL
     Indication: PAIN
     Dosage: UNK
     Route: 008
     Dates: start: 20081020, end: 20081020
  3. ROPIVACAINE. [Concomitant]
     Active Substance: ROPIVACAINE HYDROCHLORIDE
     Indication: PAIN
     Dosage: UNK
     Route: 008
     Dates: start: 200810
  4. LEVETIRACETAM. [Suspect]
     Active Substance: LEVETIRACETAM
     Indication: EPILEPSY
     Dosage: UNK, 2250 MG/D(1000-250-1000) MG/DAY
     Route: 048
     Dates: start: 2008

REACTIONS (2)
  - Maternal exposure during pregnancy [Recovered/Resolved]
  - Epilepsy [Unknown]

NARRATIVE: CASE EVENT DATE: 2008
